FAERS Safety Report 14334028 (Version 1)
Quarter: 2017Q4

REPORT INFORMATION
  Report Type: Spontaneous
  Country: US (occurrence: US)
  Receive Date: 20171228
  Receipt Date: 20171228
  Transmission Date: 20180321
  Serious: No
  Sender: FDA-Public Use
  Company Number: US-BAYER-2017-244127

PATIENT
  Age: 83 Year
  Sex: Male
  Weight: 84 kg

DRUGS (3)
  1. PRADAXA [Concomitant]
     Active Substance: DABIGATRAN ETEXILATE MESYLATE
     Dosage: UNK
  2. SOTALOL. [Concomitant]
     Active Substance: SOTALOL
  3. MIRALAX [Suspect]
     Active Substance: POLYETHYLENE GLYCOL 3350
     Indication: GASTROINTESTINAL DISORDER
     Dosage: 3 DF, QOD
     Route: 048
     Dates: start: 201712, end: 20171214

REACTIONS (7)
  - Presyncope [Recovered/Resolved]
  - Hypertension [Recovered/Resolved]
  - Abdominal pain lower [Recovered/Resolved]
  - Retching [Recovered/Resolved]
  - Back pain [Recovered/Resolved]
  - Dizziness [Recovered/Resolved]
  - Product use issue [None]

NARRATIVE: CASE EVENT DATE: 20171211
